FAERS Safety Report 7150025-0 (Version None)
Quarter: 2010Q4

REPORT INFORMATION
  Report Type: 
  Country: None (occurrence: None)
  Receive Date: 20101210
  Receipt Date: 20101208
  Transmission Date: 20110411
  Serious: No
  Sender: FDA-Public Use
  Company Number: US-PFIZER INC-2010167598

PATIENT
  Sex: Male
  Weight: 77.098 kg

DRUGS (3)
  1. ALPRAZOLAM [Suspect]
     Indication: ANXIETY
     Dosage: UNK
     Route: 048
  2. LOTREL [Concomitant]
     Indication: HYPERTENSION
     Dosage: UNK
     Route: 048
  3. AVODART [Concomitant]
     Indication: PROSTATE CANCER
     Dosage: 1 MG, 1X/DAY
     Route: 048

REACTIONS (1)
  - DRUG INEFFECTIVE [None]
